FAERS Safety Report 4507961-0 (Version None)
Quarter: 2004Q4

REPORT INFORMATION
  Report Type: 
  Country: None (occurrence: None)
  Receive Date: 20041122
  Receipt Date: 20041122
  Transmission Date: 20050328
  Serious: No
  Sender: FDA-Public Use
  Company Number: None

PATIENT
  Age: 72 Year
  Sex: Male
  Weight: 89.8122 kg

DRUGS (3)
  1. SIMVASTATIN [Suspect]
     Indication: HYPERCHOLESTEROLAEMIA
     Dosage: 20 MG PO DAILY
     Route: 048
     Dates: start: 20030924, end: 20041022
  2. OMEPRAZOLE [Concomitant]
  3. TRIAMITERINE [Concomitant]

REACTIONS (2)
  - CHROMATURIA [None]
  - FATIGUE [None]
